FAERS Safety Report 22123484 (Version 1)
Quarter: 2023Q1

REPORT INFORMATION
  Report Type: Spontaneous
  Country: DE (occurrence: DE)
  Receive Date: 20230322
  Receipt Date: 20230322
  Transmission Date: 20230417
  Serious: Yes (Other)
  Sender: FDA-Public Use
  Company Number: DE-LESVI-2023000870

PATIENT
  Age: 61 Year
  Sex: Female

DRUGS (6)
  1. LACOSAMIDE [Suspect]
     Active Substance: LACOSAMIDE
     Indication: Epilepsy
     Dosage: UNK
     Route: 065
     Dates: start: 202207
  2. RISPERIDONE [Suspect]
     Active Substance: RISPERIDONE
     Indication: Epilepsy
     Dosage: UNK
     Route: 065
     Dates: start: 202207
  3. METOPROLOL [Suspect]
     Active Substance: METOPROLOL
     Indication: Epilepsy
     Dosage: UNK
     Route: 065
     Dates: start: 202207
  4. PROMETHAZINE [Suspect]
     Active Substance: PROMETHAZINE HYDROCHLORIDE
     Indication: Restlessness
     Dosage: 10 DROP, TWO TIMES A DAY (10 DROPS DAILY IN THE MORNING AND 10 DROPS DAILY IN THE EVENING )
     Route: 065
     Dates: start: 20220701
  5. PROMETHAZINE [Suspect]
     Active Substance: PROMETHAZINE HYDROCHLORIDE
     Dosage: UNK (ADJUSTED TO 10 -0-5 DROPS DAILY. )
     Route: 065
     Dates: start: 202211
  6. PROMETHAZINE [Suspect]
     Active Substance: PROMETHAZINE HYDROCHLORIDE
     Dosage: UNK (CHANGED THE DOSING REGIMEN TO 5- 5-5 DROPS DAILY IN THE SECOND WEEK OF DECEMBER 2022)
     Route: 065
     Dates: start: 202212

REACTIONS (6)
  - Seizure [Unknown]
  - Condition aggravated [Unknown]
  - Muscle spasms [Unknown]
  - Resting tremor [Unknown]
  - Blood pressure increased [Unknown]
  - Product use in unapproved indication [Unknown]

NARRATIVE: CASE EVENT DATE: 20220101
